FAERS Safety Report 9628367 (Version 1)
Quarter: 2013Q4

REPORT INFORMATION
  Report Type: Spontaneous
  Country: FR (occurrence: FR)
  Receive Date: 20131017
  Receipt Date: 20131017
  Transmission Date: 20140711
  Serious: Yes (Hospitalization, Disabling, Other)
  Sender: FDA-Public Use
  Company Number: FR-BAYER-2013-122846

PATIENT
  Age: 47 Year
  Sex: Female

DRUGS (1)
  1. YAZ [Suspect]
     Dosage: UNK
     Dates: start: 201112, end: 201206

REACTIONS (4)
  - Cerebral venous thrombosis [None]
  - Headache [None]
  - Fatigue [None]
  - Hemiparesis [None]
